FAERS Safety Report 7729137-6 (Version None)
Quarter: 2011Q3

REPORT INFORMATION
  Report Type: 
  Country: None (occurrence: None)
  Receive Date: 20110906
  Receipt Date: 20110825
  Transmission Date: 20111222
  Serious: Yes (Hospitalization)
  Sender: FDA-Public Use
  Company Number: FR-JNJFOC-20110703722

PATIENT
  Sex: Male
  Weight: 81 kg

DRUGS (3)
  1. ZYTIGA [Suspect]
     Route: 048
     Dates: start: 20110601, end: 20110615
  2. PREDNISONE [Suspect]
     Indication: PROSTATE CANCER
     Route: 048
     Dates: start: 20110601
  3. ZYTIGA [Suspect]
     Indication: PROSTATE CANCER
     Route: 048
     Dates: start: 20110707

REACTIONS (1)
  - RENAL FAILURE [None]
